FAERS Safety Report 18586368 (Version 3)
Quarter: 2020Q4

REPORT INFORMATION
  Report Type: Spontaneous
  Country: US (occurrence: US)
  Receive Date: 20201207
  Receipt Date: 20201222
  Transmission Date: 20210114
  Serious: Yes (Other)
  Sender: FDA-Public Use
  Company Number: US-PFIZER INC-2020481226

PATIENT
  Age: 84 Year
  Sex: Female
  Weight: 63.49 kg

DRUGS (2)
  1. LATANOPROST. [Suspect]
     Active Substance: LATANOPROST
     Indication: GLAUCOMA
     Dosage: 1 DROP, 1X/DAY (1 DROP INTO BOTH EYES AT BEDTIME, OR SOMETIMES A LITTLE EARLIER)
     Route: 047
  2. LATANOPROST. [Suspect]
     Active Substance: LATANOPROST
     Dosage: 2.5 ML

REACTIONS (4)
  - Weight decreased [Recovering/Resolving]
  - Blindness [Recovering/Resolving]
  - Ocular hyperaemia [Recovering/Resolving]
  - Eye pain [Recovering/Resolving]

NARRATIVE: CASE EVENT DATE: 20201128
